FAERS Safety Report 9967796 (Version 1)
Quarter: 2014Q1

REPORT INFORMATION
  Report Type: Report from Study
  Country: US (occurrence: US)
  Receive Date: 20140306
  Receipt Date: 20140306
  Transmission Date: 20141002
  Serious: No
  Sender: FDA-Public Use
  Company Number: US-ABBVIE-13P-163-1147532-00

PATIENT
  Sex: Male

DRUGS (6)
  1. HUMIRA [Suspect]
     Indication: PSORIATIC ARTHROPATHY
     Dosage: TWO DOSES ONLY
  2. LIPITOR [Concomitant]
     Indication: BLOOD CHOLESTEROL
     Dosage: 40 MILLIGRAMS DAILY
  3. ACCUPRIL [Concomitant]
     Indication: BLOOD PRESSURE
     Dosage: 15 MILLIGRAMS A DAY
  4. DEXILANT [Concomitant]
     Indication: PROPHYLAXIS AGAINST GASTROINTESTINAL ULCER
  5. NEURONTIN [Concomitant]
     Indication: PAIN
  6. CELEBREX [Concomitant]
     Indication: ARTHRITIS

REACTIONS (2)
  - Pruritus [Not Recovered/Not Resolved]
  - Abdominal pain upper [Not Recovered/Not Resolved]
